FAERS Safety Report 8247946-4 (Version None)
Quarter: 2012Q1

REPORT INFORMATION
  Report Type: 
  Country: None (occurrence: None)
  Receive Date: 20120330
  Receipt Date: 20120315
  Transmission Date: 20120608
  Serious: Yes (Other)
  Sender: FDA-Public Use
  Company Number: US-ENDO PHARMACEUTICALS INC.-OPER20120030

PATIENT
  Sex: Male
  Weight: 99.88 kg

DRUGS (4)
  1. OPANA ER [Suspect]
     Indication: BREAKTHROUGH PAIN
     Route: 048
  2. OPANA ER [Suspect]
     Indication: SPINAL COLUMN STENOSIS
  3. OPANA ER [Suspect]
     Indication: PAIN
     Route: 048
     Dates: start: 20120301
  4. OPANA ER [Suspect]
     Indication: INTERVERTEBRAL DISC DEGENERATION
     Route: 048
     Dates: start: 20101101, end: 20120301

REACTIONS (7)
  - HYPOAESTHESIA [None]
  - INAPPROPRIATE SCHEDULE OF DRUG ADMINISTRATION [None]
  - UNDERDOSE [None]
  - DRUG INEFFECTIVE [None]
  - DYSPHAGIA [None]
  - WITHDRAWAL SYNDROME [None]
  - EAR DISORDER [None]
